FAERS Safety Report 17978743 (Version 1)
Quarter: 2020Q3

REPORT INFORMATION
  Report Type: Spontaneous
  Country: LT (occurrence: LT)
  Receive Date: 20200703
  Receipt Date: 20200703
  Transmission Date: 20201103
  Serious: Yes (Hospitalization)
  Sender: FDA-Public Use
  Company Number: LT-TEVA-2020-LT-1793590

PATIENT
  Age: 55 Year
  Sex: Male

DRUGS (1)
  1. VALSARTAN/HYDROCHLOROTHIAZIDE [Suspect]
     Active Substance: HYDROCHLOROTHIAZIDE\VALSARTAN
     Indication: HYPERTENSION
     Route: 065

REACTIONS (2)
  - Nervous system disorder [Recovered/Resolved]
  - Hyponatraemia [Recovered/Resolved]
